FAERS Safety Report 25888846 (Version 1)
Quarter: 2025Q4

REPORT INFORMATION
  Report Type: Spontaneous
  Country: MX (occurrence: MX)
  Receive Date: 20251007
  Receipt Date: 20251007
  Transmission Date: 20260118
  Serious: Yes (Death)
  Sender: SANDOZ
  Company Number: MX-002147023-NVSC2025MX152764

PATIENT
  Age: 56 Year
  Sex: Female
  Weight: 57 kg

DRUGS (3)
  1. KISQALI [Suspect]
     Active Substance: RIBOCICLIB SUCCINATE
     Indication: Breast cancer
     Dosage: 1 DOSAGE FORM, Q24H (1 X 200 MG)
     Route: 048
     Dates: start: 202406, end: 20250920
  2. KISQALI [Suspect]
     Active Substance: RIBOCICLIB SUCCINATE
     Indication: Metastases to bone
  3. METFORMIN [Suspect]
     Active Substance: METFORMIN HYDROCHLORIDE
     Indication: Diabetes mellitus
     Dosage: UNK
     Route: 065

REACTIONS (4)
  - Breast cancer [Fatal]
  - Metastases to bone [Fatal]
  - Malignant neoplasm progression [Fatal]
  - Dyspnoea [Fatal]

NARRATIVE: CASE EVENT DATE: 20250901
